FAERS Safety Report 8851895 (Version 3)
Quarter: 2013Q2

REPORT INFORMATION
  Report Type: Spontaneous
  Country: US (occurrence: US)
  Receive Date: 20121022
  Receipt Date: 20130502
  Transmission Date: 20140414
  Serious: Yes (Other)
  Sender: FDA-Public Use
  Company Number: US-PFIZER INC-2012261985

PATIENT
  Sex: Female

DRUGS (2)
  1. PRISTIQ [Suspect]
     Dosage: UNK
  2. ABILIFY [Suspect]
     Dosage: UNK

REACTIONS (7)
  - Suicidal ideation [Unknown]
  - Vertigo [Unknown]
  - Anxiety [Unknown]
  - Activities of daily living impaired [Unknown]
  - Feeling abnormal [Unknown]
  - Tachyphrenia [Unknown]
  - Anger [Unknown]
